FAERS Safety Report 5749286-1 (Version None)
Quarter: 2008Q2

REPORT INFORMATION
  Report Type: 
  Country: None (occurrence: None)
  Receive Date: 20080527
  Receipt Date: 20080516
  Transmission Date: 20081010
  Serious: Yes (Hospitalization, Disabling)
  Sender: FDA-Public Use
  Company Number: US-JNJFOC-20080300021

PATIENT
  Sex: Female
  Weight: 63.5 kg

DRUGS (16)
  1. DURAGESIC-100 [Suspect]
     Indication: ARTHRALGIA
     Route: 062
     Dates: start: 20070212, end: 20080213
  2. DURAGESIC-100 [Suspect]
     Indication: BACK PAIN
     Route: 062
     Dates: start: 20070212, end: 20080213
  3. GABAPENTIN [Concomitant]
     Indication: NEURALGIA
     Route: 048
  4. CYANOCOBALAM [Concomitant]
     Route: 065
  5. HYDROCHLOROT [Concomitant]
     Indication: BLOOD PRESSURE
     Route: 048
  6. LEVAQUIN [Concomitant]
     Indication: BACTERIAL INFECTION
     Route: 048
  7. LIDODERM [Concomitant]
     Indication: BACK PAIN
     Route: 062
  8. LIDODERM [Concomitant]
     Indication: ARTHRALGIA
     Route: 062
  9. MECLIZINE [Concomitant]
     Indication: DIZZINESS
     Route: 048
  10. NAPROXEN [Concomitant]
     Indication: PAIN
     Route: 048
  11. PROPO-N APAP [Concomitant]
     Indication: PAIN
     Dosage: 10/ 100
     Route: 048
  12. TRANSDERM SC [Concomitant]
     Indication: DIZZINESS
     Route: 062
  13. HYDROCHLOROTHIAZIDE [Concomitant]
     Indication: BLOOD PRESSURE
     Route: 048
  14. ZETIA [Concomitant]
     Indication: BLOOD CHOLESTEROL
     Route: 048
  15. ZOLPIDEM TARTRATE [Concomitant]
     Indication: INSOMNIA
     Route: 048
  16. ASPIRIN [Concomitant]
     Route: 048

REACTIONS (5)
  - CONFUSIONAL STATE [None]
  - DRUG INEFFECTIVE [None]
  - FALL [None]
  - MENTAL STATUS CHANGES [None]
  - PAIN [None]
